FAERS Safety Report 8248119-1 (Version None)
Quarter: 2012Q1

REPORT INFORMATION
  Report Type: 
  Country: None (occurrence: None)
  Receive Date: 20120330
  Receipt Date: 20120323
  Transmission Date: 20120608
  Serious: Yes (Hospitalization)
  Sender: FDA-Public Use
  Company Number: JP-BRISTOL-MYERS SQUIBB COMPANY-16474363

PATIENT
  Age: 59 Year
  Sex: Female

DRUGS (1)
  1. BARACLUDE [Suspect]
     Dosage: DURATION: ONE AND A HALF YEARS

REACTIONS (4)
  - MULTIPLE MYELOMA [None]
  - MONOPLEGIA [None]
  - GAMMA-GLUTAMYLTRANSFERASE INCREASED [None]
  - BLOOD URINE [None]
